FAERS Safety Report 19954850 (Version 1)
Quarter: 2021Q4

REPORT INFORMATION
  Report Type: Report from Study
  Country: ES (occurrence: ES)
  Receive Date: 20211013
  Receipt Date: 20211013
  Transmission Date: 20220303
  Serious: Yes (Other)
  Sender: FDA-Public Use
  Company Number: ES-ROCHE-2930287

PATIENT
  Age: 32 Year
  Sex: Female
  Weight: 70 kg

DRUGS (2)
  1. ATEZOLIZUMAB [Suspect]
     Active Substance: ATEZOLIZUMAB
     Indication: Cervix carcinoma recurrent
     Route: 042
     Dates: start: 20191015, end: 20210427
  2. BEVACIZUMAB [Suspect]
     Active Substance: BEVACIZUMAB
     Indication: Cervix carcinoma recurrent
     Route: 042
     Dates: start: 20191015, end: 20210422

REACTIONS (1)
  - Dermatomyositis [Recovered/Resolved]

NARRATIVE: CASE EVENT DATE: 20210517
